FAERS Safety Report 13076404 (Version 1)
Quarter: 2016Q4

REPORT INFORMATION
  Report Type: Spontaneous
  Country: US (occurrence: US)
  Receive Date: 20161229
  Receipt Date: 20161229
  Transmission Date: 20170207
  Serious: No
  Sender: FDA-Public Use
  Company Number: None

PATIENT
  Age: 54 Year

DRUGS (1)
  1. TC-99M MEDRONATE CARDINAL HEALTH NUCLEAR PHARMACY [Suspect]
     Active Substance: TECHNETIUM TC-99M MEDRONATE
     Indication: BONE SCAN
     Dates: start: 20161128

REACTIONS (1)
  - Product label on wrong product [None]

NARRATIVE: CASE EVENT DATE: 20161128
